FAERS Safety Report 25788431 (Version 5)
Quarter: 2025Q4

REPORT INFORMATION
  Report Type: Report from Study
  Country: US (occurrence: US)
  Receive Date: 20250910
  Receipt Date: 20251224
  Transmission Date: 20260117
  Serious: No
  Sender: PFIZER
  Company Number: US-PFIZER INC-202500176950

PATIENT
  Age: 44 Year
  Sex: Female
  Weight: 49.433 kg

DRUGS (2)
  1. TIVDAK [Suspect]
     Active Substance: TISOTUMAB VEDOTIN-TFTV
     Indication: Cervix carcinoma
     Dosage: 98MG Q3W BY IV
     Route: 042
  2. TIVDAK [Suspect]
     Active Substance: TISOTUMAB VEDOTIN-TFTV
     Dosage: 64 MG IV Q 3 W
     Route: 042

REACTIONS (2)
  - Weight increased [Unknown]
  - Off label use [Unknown]
